FAERS Safety Report 17568656 (Version 1)
Quarter: 2020Q1

REPORT INFORMATION
  Report Type: Spontaneous
  Country: CN (occurrence: CN)
  Receive Date: 20200320
  Receipt Date: 20200320
  Transmission Date: 20200409
  Serious: Yes (Hospitalization)
  Sender: FDA-Public Use
  Company Number: CN-BAXTER-2020BAX006048

PATIENT
  Age: 7 Year
  Sex: Female
  Weight: 20 kg

DRUGS (9)
  1. 0.9% SODIUM CHLORIDE INJECTION [Suspect]
     Active Substance: SODIUM CHLORIDE
     Indication: MEDICATION DILUTION
     Dosage: ENDOXAN 810 MG + 0.9% NS 69 ML (DAY1-2)
     Route: 041
     Dates: start: 20200220, end: 20200221
  2. 0.9% SODIUM CHLORIDE INJECTION [Suspect]
     Active Substance: SODIUM CHLORIDE
     Dosage: NUO XIN 60.80 MG + 0.9% NS 162ML (DAY 1)
     Route: 041
     Dates: start: 20200220, end: 20200220
  3. 0.9% SODIUM CHLORIDE INJECTION [Suspect]
     Active Substance: SODIUM CHLORIDE
     Dosage: ONDANSETRON INJECTION 4.1 MG + 0.9% NS 25 ML, THIRTY MINUTES BEFORE DAILY CHEMOTHERAPY
     Route: 041
     Dates: start: 20200220, end: 20200221
  4. NUO XIN [Suspect]
     Active Substance: CISPLATIN
     Indication: MEDULLOBLASTOMA
     Dosage: NUO XIN 60.80 MG + 0.9% NS 162ML (DAY 1)
     Route: 041
     Dates: start: 20200220, end: 20200220
  5. VINCRISTINE SULFATE. [Suspect]
     Active Substance: VINCRISTINE SULFATE
     Indication: MEDULLOBLASTOMA
     Dosage: VINCRISTINE SULFATE 1.2 MG + 0.9% NS 20ML (DAY 1)
     Route: 042
     Dates: start: 20200220, end: 20200220
  6. ONDANSETRON HYDROCHLORIDE. [Suspect]
     Active Substance: ONDANSETRON HYDROCHLORIDE
     Indication: PROPHYLAXIS
     Dosage: ONDANSETRON HYDROCHLORIDE 4.1 MG + 0.9% NS 25 ML, THIRTY MINUTES BEFORE DAILY CHEMOTHERAPY
     Route: 041
     Dates: start: 20200220, end: 20200221
  7. ENDOXAN [Suspect]
     Active Substance: CYCLOPHOSPHAMIDE
     Indication: MEDULLOBLASTOMA
     Dosage: ENDOXAN 810 MG + 0.9% NS 69 ML (DAY1-2)
     Route: 041
     Dates: start: 20200220, end: 20200221
  8. 0.9% SODIUM CHLORIDE INJECTION [Suspect]
     Active Substance: SODIUM CHLORIDE
     Dosage: VINCRISTINE SULFATE 1.2 MG + 0.9% NS 20ML (DAY 1)
     Route: 042
     Dates: start: 20200220, end: 20200220
  9. MESNA. [Suspect]
     Active Substance: MESNA
     Indication: PROPHYLAXIS
     Dosage: DAY 1 TO 2
     Route: 041
     Dates: start: 20200220, end: 20200221

REACTIONS (5)
  - Pyrexia [Recovered/Resolved]
  - Haemoglobin decreased [Recovering/Resolving]
  - Neutrophil count decreased [Recovering/Resolving]
  - White blood cell count decreased [Recovering/Resolving]
  - Platelet count decreased [Recovering/Resolving]

NARRATIVE: CASE EVENT DATE: 20200226
